FAERS Safety Report 24019610 (Version 1)
Quarter: 2024Q2

REPORT INFORMATION
  Report Type: Report from Study
  Country: JP (occurrence: JP)
  Receive Date: 20240627
  Receipt Date: 20240627
  Transmission Date: 20240716
  Serious: Yes (Hospitalization)
  Sender: FDA-Public Use
  Company Number: JP-RADIUS HEALTH, INC.-2024JP002435

PATIENT
  Age: 73 Year
  Sex: Male

DRUGS (2)
  1. ABALOPARATIDE [Suspect]
     Active Substance: ABALOPARATIDE
     Indication: Product used for unknown indication
     Dosage: 80 MICROGRAM
     Route: 058
     Dates: start: 20240322, end: 202403
  2. ABALOPARATIDE [Suspect]
     Active Substance: ABALOPARATIDE
     Dosage: 80 MICROGRAM
     Route: 058
     Dates: start: 20240617

REACTIONS (7)
  - Physical deconditioning [Unknown]
  - Nausea [Unknown]
  - Headache [Unknown]
  - Collagen disorder [Unknown]
  - Cardiac disorder [Recovered/Resolved]
  - Back pain [Unknown]
  - Spinal pain [Unknown]

NARRATIVE: CASE EVENT DATE: 20240301
